FAERS Safety Report 5533665-1 (Version None)
Quarter: 2007Q4

REPORT INFORMATION
  Report Type: 
  Country: None (occurrence: None)
  Receive Date: 20071120
  Receipt Date: 20070913
  Transmission Date: 20080405
  Serious: No
  Sender: FDA-Public Use
  Company Number: WAES 0709USA02080

PATIENT
  Age: 69 Year
  Sex: Male

DRUGS (8)
  1. JANUVIA [Suspect]
     Indication: BLOOD GLUCOSE
     Dosage: DAILY/PO
     Route: 048
     Dates: start: 20070109, end: 20070118
  2. AMARYL [Concomitant]
  3. AMBIEN [Concomitant]
  4. BENICAR [Concomitant]
  5. IMDUR [Concomitant]
  6. LASIX [Concomitant]
  7. HYDRALAZINE [Concomitant]
  8. POTASSIUM CHLORIDE [Concomitant]

REACTIONS (2)
  - RASH GENERALISED [None]
  - WRONG TECHNIQUE IN DRUG USAGE PROCESS [None]
